FAERS Safety Report 18539762 (Version 1)
Quarter: 2020Q4

REPORT INFORMATION
  Report Type: Spontaneous
  Country: US (occurrence: US)
  Receive Date: 20201123
  Receipt Date: 20201123
  Transmission Date: 20210114
  Serious: Yes (Other)
  Sender: FDA-Public Use
  Company Number: None

PATIENT
  Age: 64 Year
  Sex: Female

DRUGS (1)
  1. CAPECITABINE 500MG [Suspect]
     Active Substance: CAPECITABINE
     Indication: NEOPLASM MALIGNANT
     Dosage: ?          OTHER DOSE:3 TABLETS;?
     Route: 048
     Dates: start: 20201021

REACTIONS (3)
  - Pain [None]
  - Skin burning sensation [None]
  - Paraesthesia [None]
